FAERS Safety Report 10357769 (Version 1)
Quarter: 2014Q3

REPORT INFORMATION
  Report Type: Spontaneous
  Country: US (occurrence: None)
  Receive Date: 20140730
  Receipt Date: 20140730
  Transmission Date: 20150326
  Serious: Yes (Life-Threatening)
  Sender: FDA-Public Use
  Company Number: None

PATIENT
  Age: 43 Year
  Sex: Female
  Weight: 64.86 kg

DRUGS (3)
  1. VENLAFAXINE [Suspect]
     Active Substance: VENLAFAXINE HYDROCHLORIDE
     Indication: INSOMNIA
     Dosage: 37.5 TWICE DAILY TAKEN BY MOUTH
     Route: 048
  2. VENLAFAXINE [Suspect]
     Active Substance: VENLAFAXINE HYDROCHLORIDE
     Indication: ANXIETY
     Dosage: 37.5 TWICE DAILY TAKEN BY MOUTH
     Route: 048
  3. VENLAFAXINE [Suspect]
     Active Substance: VENLAFAXINE HYDROCHLORIDE
     Dosage: 37.5 TWICE DAILY TAKEN BY MOUTH
     Route: 048

REACTIONS (3)
  - Maternal exposure before pregnancy [None]
  - Pregnancy [None]
  - Abortion spontaneous [None]

NARRATIVE: CASE EVENT DATE: 20140716
